FAERS Safety Report 26047599 (Version 1)
Quarter: 2025Q4

REPORT INFORMATION
  Report Type: Spontaneous
  Country: US (occurrence: US)
  Receive Date: 20251114
  Receipt Date: 20251114
  Transmission Date: 20260117
  Serious: Yes (Hospitalization)
  Sender: AMGEN
  Company Number: US-AMGEN-USASP2025223012

PATIENT
  Age: 63 Year
  Sex: Male

DRUGS (6)
  1. PREDNISONE [Suspect]
     Active Substance: PREDNISONE
     Indication: Gout
     Dosage: UNK
     Route: 065
  2. HYDROMORPHONE [Suspect]
     Active Substance: HYDROMORPHONE
     Indication: Analgesic therapy
     Route: 065
  3. APIXABAN [Concomitant]
     Active Substance: APIXABAN
     Indication: Pulmonary embolism
  4. NALBUPHINE [Concomitant]
     Active Substance: NALBUPHINE
     Indication: Analgesic therapy
     Dosage: UNK
  5. NALBUPHINE [Concomitant]
     Active Substance: NALBUPHINE
     Dosage: 10 MILLIGRAM
     Route: 040
  6. COLCHICINE [Concomitant]
     Active Substance: COLCHICINE
     Indication: Gout

REACTIONS (1)
  - Gout [Unknown]
